FAERS Safety Report 15626503 (Version 1)
Quarter: 2018Q4

REPORT INFORMATION
  Report Type: Spontaneous
  Country: CA (occurrence: CA)
  Receive Date: 20181116
  Receipt Date: 20181116
  Transmission Date: 20190205
  Serious: Yes (Hospitalization, Other)
  Sender: FDA-Public Use
  Company Number: CA-TEVA-2018-CA-976410

PATIENT
  Age: 52 Year
  Sex: Female

DRUGS (5)
  1. IRON [Concomitant]
     Active Substance: IRON
     Route: 065
  2. MEZAVANT ALSO KNOWN AS MESALAMINE [Concomitant]
  3. FUROSEMIDE. [Suspect]
     Active Substance: FUROSEMIDE
     Indication: PRODUCT USED FOR UNKNOWN INDICATION
     Route: 065
  4. BISOPROLOL [Concomitant]
     Active Substance: BISOPROLOL
     Route: 065
  5. FLECAINIDE [Concomitant]
     Active Substance: FLECAINIDE

REACTIONS (6)
  - Bradycardia [Not Recovered/Not Resolved]
  - Abscess limb [Not Recovered/Not Resolved]
  - Arrhythmia [Not Recovered/Not Resolved]
  - Fatigue [Not Recovered/Not Resolved]
  - Cellulitis [Not Recovered/Not Resolved]
  - Dizziness [Not Recovered/Not Resolved]
